FAERS Safety Report 4683161-9 (Version None)
Quarter: 2005Q2

REPORT INFORMATION
  Report Type: 
  Country: None (occurrence: None)
  Receive Date: 20050602
  Receipt Date: 20050308
  Transmission Date: 20051028
  Serious: No
  Sender: FDA-Public Use
  Company Number: USA050392653

PATIENT
  Age: 67 Year
  Sex: Female
  Weight: 82 kg

DRUGS (3)
  1. CYMBALTA [Suspect]
     Indication: GASTRIC DISORDER
     Dosage: 30 MG DAY
     Dates: start: 20050306
  2. ACIPHEX [Concomitant]
  3. MYLANTA(CALCIUM CARBONATE) [Concomitant]

REACTIONS (3)
  - BURNING SENSATION [None]
  - GASTRITIS [None]
  - NAUSEA [None]
